FAERS Safety Report 13516694 (Version 1)
Quarter: 2017Q2

REPORT INFORMATION
  Report Type: Spontaneous
  Country: US (occurrence: US)
  Receive Date: 20170505
  Receipt Date: 20170505
  Transmission Date: 20170830
  Serious: Yes (Other)
  Sender: FDA-Public Use
  Company Number: US-AMGEN-USASP2017067408

PATIENT
  Age: 86 Year
  Sex: Female

DRUGS (1)
  1. ENBREL [Suspect]
     Active Substance: ETANERCEPT
     Indication: RHEUMATOID ARTHRITIS
     Dosage: 50 MG, QWK
     Route: 058
     Dates: start: 2004

REACTIONS (9)
  - Rash pustular [Unknown]
  - Fatigue [Unknown]
  - Bone pain [Unknown]
  - Oedema peripheral [Unknown]
  - Memory impairment [Recovered/Resolved]
  - Macular degeneration [Unknown]
  - Headache [Unknown]
  - Myalgia [Unknown]
  - Dyspnoea [Unknown]

NARRATIVE: CASE EVENT DATE: 201610
